FAERS Safety Report 11218399 (Version 4)
Quarter: 2015Q3

REPORT INFORMATION
  Report Type: Report from Study
  Country: US (occurrence: US)
  Receive Date: 20150625
  Receipt Date: 20150921
  Transmission Date: 20151125
  Serious: Yes (Other)
  Sender: FDA-Public Use
  Company Number: US-SA-2015SA090637

PATIENT
  Age: 69 Year
  Sex: Female

DRUGS (1)
  1. LEMTRADA [Suspect]
     Active Substance: ALEMTUZUMAB
     Indication: MULTIPLE SCLEROSIS
     Route: 041
     Dates: start: 20150601, end: 20150605

REACTIONS (12)
  - Weight decreased [Unknown]
  - Diarrhoea [Unknown]
  - Ill-defined disorder [Unknown]
  - Oral mucosal eruption [Unknown]
  - Fatigue [Unknown]
  - Dizziness [Unknown]
  - Mental impairment [Unknown]
  - Skin discolouration [Unknown]
  - Blood pressure decreased [Unknown]
  - Feeling abnormal [Unknown]
  - Gait disturbance [Unknown]
  - Anaemia [Unknown]

NARRATIVE: CASE EVENT DATE: 2015
